FAERS Safety Report 23931674 (Version 1)
Quarter: 2024Q2

REPORT INFORMATION
  Report Type: Spontaneous
  Country: US (occurrence: US)
  Receive Date: 20240603
  Receipt Date: 20240603
  Transmission Date: 20240716
  Serious: Yes (Hospitalization, Other)
  Sender: FDA-Public Use
  Company Number: US-ALEMBIC PHARMACUETICALS LIMITED-2024SCAL000708

PATIENT

DRUGS (1)
  1. LAMOTRIGINE [Suspect]
     Active Substance: LAMOTRIGINE
     Indication: Product used for unknown indication
     Dosage: UNK
     Route: 065

REACTIONS (11)
  - Septic shock [Unknown]
  - Peritonitis bacterial [Unknown]
  - Liver disorder [Unknown]
  - Condition aggravated [Unknown]
  - Hepatic fibrosis [Unknown]
  - Critical illness [Unknown]
  - Drug-induced liver injury [Unknown]
  - Hypertransaminasaemia [Unknown]
  - Vomiting [Unknown]
  - Multiple organ dysfunction syndrome [Unknown]
  - Liver injury [Unknown]

NARRATIVE: CASE EVENT DATE: 20220101
